FAERS Safety Report 13264277 (Version 2)
Quarter: 2017Q1

REPORT INFORMATION
  Report Type: Spontaneous
  Country: NL (occurrence: NL)
  Receive Date: 20170223
  Receipt Date: 20170323
  Transmission Date: 20170428
  Serious: Yes (Disabling)
  Sender: FDA-Public Use
  Company Number: NL-PFIZER INC-2017073752

PATIENT
  Age: 71 Year
  Sex: Male

DRUGS (4)
  1. TOVIAZ [Suspect]
     Active Substance: FESOTERODINE FUMARATE
     Indication: POLLAKIURIA
     Dosage: 4 MG, 1X/DAY IN THE EVENING
  2. DEPAKINE [Concomitant]
     Active Substance: VALPROATE SODIUM
     Dosage: UNK
  3. MELATONINE [Concomitant]
     Active Substance: MELATONIN
     Dosage: UNK
  4. TRUXAL [Concomitant]
     Active Substance: CHLORPROTHIXENE

REACTIONS (1)
  - Cataract [Not Recovered/Not Resolved]
